FAERS Safety Report 10872585 (Version 2)
Quarter: 2015Q1

REPORT INFORMATION
  Report Type: Report from Study
  Country: AU (occurrence: AU)
  Receive Date: 20150227
  Receipt Date: 20150306
  Transmission Date: 20150721
  Serious: Yes (Hospitalization)
  Sender: FDA-Public Use
  Company Number: AU-AMGEN-AUSCT2015017339

PATIENT
  Age: 72 Year
  Sex: Female
  Weight: 63.1 kg

DRUGS (17)
  1. DEXAMETHASONE. [Concomitant]
     Active Substance: DEXAMETHASONE
     Indication: PLASMA CELL MYELOMA
     Dosage: 8 MG, PER CHEMO REGIM
     Route: 065
     Dates: start: 20140616
  2. VALTREX [Concomitant]
     Active Substance: VALACYCLOVIR HYDROCHLORIDE
     Indication: HERPES ZOSTER
     Dosage: 500 MG, BID
     Route: 048
     Dates: start: 20120401
  3. VITAMIN B1                         /00056101/ [Concomitant]
     Indication: VITAMIN SUPPLEMENTATION
     Dosage: 1 UNIT, QD
     Route: 048
     Dates: start: 2013
  4. KEFLEX [Concomitant]
     Active Substance: CEPHALEXIN
     Indication: UROSEPSIS
     Dosage: 500 MG, TID
     Route: 048
     Dates: start: 20141231
  5. PREGABALIN. [Concomitant]
     Active Substance: PREGABALIN
     Indication: NEUROPATHY PERIPHERAL
     Dosage: 100 MG, QD
     Route: 048
     Dates: start: 2012
  6. LAMIVUDINE. [Concomitant]
     Active Substance: LAMIVUDINE
     Indication: HEPATITIS B
     Dosage: 100 MG, QD
     Route: 048
     Dates: start: 2013
  7. FRUSEMIDE                          /00032601/ [Concomitant]
     Active Substance: FUROSEMIDE
     Indication: CARDIAC FAILURE
     Dosage: 20 MG, QD
     Route: 048
     Dates: start: 20141229
  8. CARFILZOMIB [Suspect]
     Active Substance: CARFILZOMIB
     Indication: PLASMA CELL MYELOMA
     Dosage: 56 MG/M2, PER CHEMO REGIM
     Route: 042
     Dates: start: 20140616
  9. FENTANYL. [Concomitant]
     Active Substance: FENTANYL
     Indication: PAIN
     Dosage: 50 MUG, UNK
     Route: 062
     Dates: start: 2012
  10. OXYTROL [Concomitant]
     Active Substance: OXYBUTYNIN
     Indication: PAIN
     Dosage: 3 MG, UNK
     Route: 062
     Dates: start: 2012
  11. CALTRATE                           /00944201/ [Concomitant]
     Indication: MINERAL SUPPLEMENTATION
     Dosage: 600 MG, QD
     Route: 048
     Dates: start: 20130509
  12. MAXOLON [Concomitant]
     Active Substance: METOCLOPRAMIDE HYDROCHLORIDE
     Indication: NAUSEA
     Dosage: 10 MG, AS NECESSARY
     Route: 048
     Dates: start: 20141103
  13. CYCLIZINE [Concomitant]
     Active Substance: CYCLIZINE
     Indication: NAUSEA
     Dosage: 50 MG, AS NECESSARY
     Route: 042
     Dates: start: 20150128
  14. CLEXANE [Concomitant]
     Active Substance: ENOXAPARIN SODIUM
     Indication: DEEP VEIN THROMBOSIS
     Dosage: 20 MG, QD
     Route: 048
     Dates: start: 20141229
  15. CRANBERRY                          /01512301/ [Concomitant]
     Indication: URINARY TRACT INFECTION
     Dosage: 1 UNIT, QD
     Route: 048
     Dates: start: 2013
  16. DIGOXIN. [Concomitant]
     Active Substance: DIGOXIN
     Indication: ATRIAL FIBRILLATION
     Dosage: 250 MUG, QD
     Route: 048
     Dates: start: 20140705
  17. ASPIRIN                            /00002701/ [Concomitant]
     Active Substance: ASPIRIN
     Indication: DEEP VEIN THROMBOSIS
     Dosage: 100 MG, QD
     Route: 048
     Dates: start: 20141229

REACTIONS (1)
  - Pneumonia [Not Recovered/Not Resolved]

NARRATIVE: CASE EVENT DATE: 20150224
